FAERS Safety Report 21588184 (Version 1)
Quarter: 2022Q4

REPORT INFORMATION
  Report Type: Spontaneous
  Country: US (occurrence: US)
  Receive Date: 20221114
  Receipt Date: 20221114
  Transmission Date: 20230112
  Serious: No
  Sender: FDA-Public Use
  Company Number: US-JNJFOC-20221108111

PATIENT
  Sex: Male

DRUGS (3)
  1. ERLEADA [Suspect]
     Active Substance: APALUTAMIDE
     Indication: Product used for unknown indication
     Route: 048
  2. LISINOPRIL [Suspect]
     Active Substance: LISINOPRIL
  3. METOPROLOL [Concomitant]
     Active Substance: METOPROLOL

REACTIONS (1)
  - Hypersensitivity [Unknown]
